FAERS Safety Report 9068233 (Version 2)
Quarter: 2013Q1

REPORT INFORMATION
  Report Type: Report from Study
  Country: US (occurrence: US)
  Receive Date: 20130206
  Receipt Date: 20130305
  Transmission Date: 20140127
  Serious: Yes (Hospitalization, Other)
  Sender: FDA-Public Use
  Company Number: US-ABBOTT-13P-163-1043653-00

PATIENT
  Age: 55 None
  Sex: Male
  Weight: 81.72 kg

DRUGS (12)
  1. HUMIRA [Suspect]
     Indication: RHEUMATOID ARTHRITIS
     Dates: start: 2011, end: 201209
  2. HUMIRA [Suspect]
     Dates: start: 20130122
  3. METHOTREXATE [Concomitant]
     Indication: RHEUMATOID ARTHRITIS
  4. PLAQUENIL [Concomitant]
     Indication: PRODUCT USED FOR UNKNOWN INDICATION
  5. FOLIC ACID [Concomitant]
     Indication: PRODUCT USED FOR UNKNOWN INDICATION
  6. LISINOPRIL [Concomitant]
     Indication: HYPERTENSION
  7. TRAMADOL [Concomitant]
     Indication: OSTEOARTHRITIS
  8. RANITIDINE [Concomitant]
     Indication: GASTROOESOPHAGEAL REFLUX DISEASE
  9. CYMBALTA [Concomitant]
     Indication: DEPRESSION
  10. ABILIFY [Concomitant]
     Indication: DEPRESSION
  11. XANAX [Concomitant]
     Indication: PANIC ATTACK
  12. XANAX [Concomitant]
     Indication: PROPHYLAXIS

REACTIONS (5)
  - Benign prostatic hyperplasia [Recovered/Resolved]
  - Dysuria [Recovered/Resolved]
  - Urinary retention [Recovered/Resolved]
  - Haematuria [Recovered/Resolved]
  - Urine flow decreased [Recovered/Resolved]
